FAERS Safety Report 15172797 (Version 1)
Quarter: 2018Q3

REPORT INFORMATION
  Report Type: Spontaneous
  Country: US (occurrence: US)
  Receive Date: 20180720
  Receipt Date: 20180720
  Transmission Date: 20181010
  Serious: Yes (Hospitalization)
  Sender: FDA-Public Use
  Company Number: US-ROCHE-2089831

PATIENT
  Age: 39 Year
  Sex: Female

DRUGS (2)
  1. ONDANSETRON [Concomitant]
     Active Substance: ONDANSETRON
  2. PERTUZUMAB. [Suspect]
     Active Substance: PERTUZUMAB
     Indication: BREAST CANCER METASTATIC
     Route: 065

REACTIONS (1)
  - Anaphylactic reaction [Recovered/Resolved]
